FAERS Safety Report 4586299-X (Version None)
Quarter: 2005Q1

REPORT INFORMATION
  Report Type: 
  Country: None (occurrence: None)
  Receive Date: 20050125
  Receipt Date: 20040929
  Transmission Date: 20050727
  Serious: No
  Sender: FDA-Public Use
  Company Number: USA040979676

PATIENT
  Age: 63 Year
  Sex: Female
  Weight: 73 kg

DRUGS (3)
  1. FORTEO [Suspect]
     Indication: OSTEOPOROSIS
     Dosage: 20 UG/1 DAY
     Dates: start: 20040917
  2. CALCIUM CARBONATE W/VITAMIN D NOS [Concomitant]
  3. LIPITOR [Concomitant]

REACTIONS (4)
  - FEELING ABNORMAL [None]
  - INSOMNIA [None]
  - MYALGIA [None]
  - NAUSEA [None]
